FAERS Safety Report 5116906-4 (Version None)
Quarter: 2006Q3

REPORT INFORMATION
  Report Type: 
  Country: None (occurrence: None)
  Receive Date: 20060927
  Receipt Date: 20060927
  Transmission Date: 20061208
  Serious: Yes (Hospitalization)
  Sender: FDA-Public Use
  Company Number: None

PATIENT
  Sex: Female
  Weight: 80 kg

DRUGS (2)
  1. CARBOPLATIN [Suspect]
     Dosage: 534 MG; AUC +6 EVERY 21 DAYS
  2. TAXOL [Suspect]
     Dosage: 343 MG; 175MG/M2

REACTIONS (2)
  - NEUTROPHIL COUNT ABNORMAL [None]
  - WHITE BLOOD CELL COUNT ABNORMAL [None]
